FAERS Safety Report 19617550 (Version 1)
Quarter: 2021Q3

REPORT INFORMATION
  Report Type: Spontaneous
  Country: US (occurrence: US)
  Receive Date: 20210727
  Receipt Date: 20210727
  Transmission Date: 20211014
  Serious: No
  Sender: FDA-Public Use
  Company Number: US-ABBVIE-21K-163-3917630-00

PATIENT
  Sex: Female

DRUGS (2)
  1. ORILISSA [Suspect]
     Active Substance: ELAGOLIX SODIUM
     Indication: POLYCYSTIC OVARIES
  2. ORILISSA [Suspect]
     Active Substance: ELAGOLIX SODIUM
     Indication: ENDOMETRIOSIS
     Route: 048
     Dates: start: 20190813, end: 20191013

REACTIONS (16)
  - Neck pain [Unknown]
  - Insomnia [Not Recovered/Not Resolved]
  - Alopecia [Unknown]
  - Dry skin [Unknown]
  - Mental disorder [Unknown]
  - Headache [Unknown]
  - Dyspepsia [Unknown]
  - Musculoskeletal stiffness [Unknown]
  - Back pain [Unknown]
  - Rash [Unknown]
  - Abdominal pain [Unknown]
  - Nausea [Unknown]
  - Feeling abnormal [Unknown]
  - Photophobia [Unknown]
  - Acne [Unknown]
  - Asthenopia [Unknown]

NARRATIVE: CASE EVENT DATE: 2019
